FAERS Safety Report 8919534 (Version 2)
Quarter: 2013Q1

REPORT INFORMATION
  Report Type: Spontaneous
  Country: US (occurrence: US)
  Receive Date: 20121121
  Receipt Date: 20130123
  Transmission Date: 20140127
  Serious: No
  Sender: FDA-Public Use
  Company Number: US-009507513-1211USA003275

PATIENT
  Age: 65 Year
  Sex: Female

DRUGS (6)
  1. NASONEX [Suspect]
     Indication: EAR INFECTION
     Dosage: 4 DF, QD
     Route: 045
     Dates: start: 20121027, end: 20121101
  2. NASONEX [Suspect]
     Indication: SINUS DISORDER
  3. ALAVERT [Concomitant]
  4. CELEXA [Concomitant]
  5. ZYRTEC [Concomitant]
  6. MECLIZINE [Concomitant]

REACTIONS (2)
  - Vasodilatation [Recovering/Resolving]
  - Photophobia [Recovering/Resolving]
